FAERS Safety Report 22688996 (Version 2)
Quarter: 2023Q4

REPORT INFORMATION
  Report Type: Spontaneous
  Country: CZ (occurrence: CZ)
  Receive Date: 20230710
  Receipt Date: 20231002
  Transmission Date: 20240110
  Serious: Yes (Hospitalization)
  Sender: FDA-Public Use
  Company Number: CZ-ELI_LILLY_AND_COMPANY-CZ202306019224

PATIENT
  Age: 61 Year
  Sex: Female
  Weight: 74 kg

DRUGS (9)
  1. ABEMACICLIB [Suspect]
     Active Substance: ABEMACICLIB
     Indication: Breast cancer metastatic
     Dosage: 150 MG, BID
     Route: 048
  2. ABEMACICLIB [Suspect]
     Active Substance: ABEMACICLIB
     Dosage: 100 MG, BID
     Route: 048
  3. ABEMACICLIB [Suspect]
     Active Substance: ABEMACICLIB
     Dosage: 150 MG, BID
     Route: 048
  4. ACTISORB PLUS [Concomitant]
     Indication: Product used for unknown indication
  5. EXUFIBER AG+ [Concomitant]
     Indication: Product used for unknown indication
  6. CARBOHYDRATES\FATTY ACIDS\MINERALS\PROTEIN\VITAMINS [Concomitant]
     Active Substance: CARBOHYDRATES\FATTY ACIDS\MINERALS\PROTEIN\VITAMINS
     Indication: Product used for unknown indication
  7. FENTALIS [FENTANYL] [Concomitant]
     Indication: Product used for unknown indication
     Dosage: 12.5 UG, UNKNOWN
  8. DENOSUMAB [Concomitant]
     Active Substance: DENOSUMAB
     Indication: Product used for unknown indication
  9. CALCIUM CARBONATE [Concomitant]
     Active Substance: CALCIUM CARBONATE
     Indication: Product used for unknown indication

REACTIONS (12)
  - Clostridium difficile colitis [Unknown]
  - Clostridium difficile colitis [Unknown]
  - Fall [Unknown]
  - Patella fracture [Unknown]
  - Systemic inflammatory response syndrome [Unknown]
  - Back pain [Unknown]
  - Blood alkaline phosphatase increased [Unknown]
  - Ascites [Unknown]
  - Leukopenia [Unknown]
  - Diarrhoea [Unknown]
  - Alopecia [Unknown]
  - Anaemia [Unknown]

NARRATIVE: CASE EVENT DATE: 20211201
